FAERS Safety Report 8136396-7 (Version None)
Quarter: 2012Q1

REPORT INFORMATION
  Report Type: 
  Country: None (occurrence: None)
  Receive Date: 20120214
  Receipt Date: 20120203
  Transmission Date: 20120608
  Serious: Yes (Hospitalization, Other)
  Sender: FDA-Public Use
  Company Number: US-ELI_LILLY_AND_COMPANY-US201112005183

PATIENT
  Sex: Female

DRUGS (4)
  1. NORTRIPTYLINE HCL [Concomitant]
     Dosage: 40 MG, QD
  2. AMLODIPINE [Concomitant]
     Dosage: 5 MG, QD
  3. FORTEO [Suspect]
     Indication: OSTEOPOROSIS
     Dosage: 20 UG, QD
     Route: 065
     Dates: start: 20111201, end: 20120101
  4. PRAVASTATIN [Concomitant]
     Dosage: UNK, QD

REACTIONS (5)
  - POSTOPERATIVE ADHESION [None]
  - ADVERSE DRUG REACTION [None]
  - INJECTION SITE ERYTHEMA [None]
  - INTESTINAL OBSTRUCTION [None]
  - NAUSEA [None]
